FAERS Safety Report 10788635 (Version 1)
Quarter: 2015Q1

REPORT INFORMATION
  Report Type: Spontaneous
  Country: US (occurrence: None)
  Receive Date: 20150211
  Receipt Date: 20150211
  Transmission Date: 20150721
  Serious: Yes (Hospitalization)
  Sender: FDA-Public Use
  Company Number: None

PATIENT
  Age: 66 Year
  Sex: Female
  Weight: 75.48 kg

DRUGS (1)
  1. NUVIGIL [Suspect]
     Active Substance: ARMODAFINIL
     Dosage: STUDY DRUG DOSE IS BLINDED, AND PT^S ARE RANDOMIZED TO EITHER 150MG, 250MG, OR PLACEBO
     Dates: start: 20141223, end: 20150126

REACTIONS (12)
  - Fluid intake reduced [None]
  - Urinary tract infection [None]
  - Mental status changes [None]
  - Electrolyte imbalance [None]
  - Metabolic acidosis [None]
  - Acute kidney injury [None]
  - Gastrointestinal viral infection [None]
  - Urinary incontinence [None]
  - Anaemia [None]
  - Dehydration [None]
  - Asthenia [None]
  - Hypersomnia [None]

NARRATIVE: CASE EVENT DATE: 20150127
